FAERS Safety Report 22188800 (Version 1)
Quarter: 2023Q2

REPORT INFORMATION
  Report Type: Spontaneous
  Country: US (occurrence: US)
  Receive Date: 20230409
  Receipt Date: 20230409
  Transmission Date: 20230722
  Serious: No
  Sender: FDA-Public Use
  Company Number: US-JNJFOC-20230408295

PATIENT
  Age: 85 Year
  Sex: Male

DRUGS (1)
  1. ERLEADA [Suspect]
     Active Substance: APALUTAMIDE
     Indication: Product used for unknown indication
     Dosage: 60MG 3 TABLETS BY MOUTH DAILY
     Route: 048
     Dates: start: 20220609

REACTIONS (2)
  - Rash [Unknown]
  - Off label use [Unknown]
